FAERS Safety Report 8451705-7 (Version None)
Quarter: 2012Q2

REPORT INFORMATION
  Report Type: 
  Country: None (occurrence: None)
  Receive Date: 20120620
  Receipt Date: 20120326
  Transmission Date: 20120825
  Serious: No
  Sender: FDA-Public Use
  Company Number: US-VERTEX PHARMACEUTICALS INC.-AE-2012-003661

PATIENT
  Sex: Female

DRUGS (6)
  1. INCIVEK [Suspect]
     Indication: HEPATITIS C
     Route: 048
     Dates: start: 20111202
  2. RIBAVIRIN [Concomitant]
     Indication: HEPATITIS C
     Dates: start: 20111202
  3. RIBAVIRIN [Concomitant]
     Dates: start: 20111230
  4. PEGINTERFERON ALFA-2A [Concomitant]
     Indication: HEPATITIS C
     Dates: start: 20111202
  5. RIBAVIRIN [Concomitant]
     Dates: start: 20120306
  6. RIBAVIRIN [Concomitant]
     Dates: start: 20120106

REACTIONS (5)
  - DYSPNOEA [None]
  - NAUSEA [None]
  - ANAEMIA [None]
  - FATIGUE [None]
  - RASH [None]
